FAERS Safety Report 17925162 (Version 1)
Quarter: 2020Q2

REPORT INFORMATION
  Report Type: Spontaneous
  Country: US (occurrence: US)
  Receive Date: 20200622
  Receipt Date: 20200622
  Transmission Date: 20200714
  Serious: Yes (Hospitalization)
  Sender: FDA-Public Use
  Company Number: US-VERTEX PHARMACEUTICALS-2020-012627

PATIENT
  Age: 55 Year
  Sex: Male

DRUGS (33)
  1. OXYCODONE HYDROCHLORIDE. [Concomitant]
     Active Substance: OXYCODONE HYDROCHLORIDE
  2. FORTEO [Concomitant]
     Active Substance: TERIPARATIDE
  3. COLACE [Concomitant]
     Active Substance: DOCUSATE SODIUM
  4. COREG [Concomitant]
     Active Substance: CARVEDILOL
  5. ADDERALL [Concomitant]
     Active Substance: AMPHETAMINE ASPARTATE\AMPHETAMINE SULFATE\DEXTROAMPHETAMINE SACCHARATE\DEXTROAMPHETAMINE SULFATE
  6. FUROSEMIDE. [Concomitant]
     Active Substance: FUROSEMIDE
  7. SPIRIVA RESPIMAT [Concomitant]
     Active Substance: TIOTROPIUM BROMIDE
  8. LEVALBUTEROL HCL [Concomitant]
     Active Substance: LEVALBUTEROL HYDROCHLORIDE
  9. ZOFRAN [Concomitant]
     Active Substance: ONDANSETRON HYDROCHLORIDE
  10. SUCRALFATE. [Concomitant]
     Active Substance: SUCRALFATE
  11. BACLOFEN. [Concomitant]
     Active Substance: BACLOFEN
  12. MILK OF MAGNESIA [Concomitant]
     Active Substance: MAGNESIUM HYDROXIDE
  13. TRIKAFTA [Suspect]
     Active Substance: ELEXACAFTOR\IVACAFTOR\TEZACAFTOR
     Indication: CYSTIC FIBROSIS
     Dosage: 2 TABLETS (100MG ELEXACAFTOR/ 50MG TEZACAFTOR/ 75MG IVACAFTOR) AM, 1 TABLET (150MG IVACAFTOR) PM
     Route: 048
     Dates: start: 20200105
  14. TOBRAMYCIN [TOBRAMYCIN SULFATE] [Concomitant]
     Active Substance: TOBRAMYCIN SULFATE
  15. POTASSIUM CHLORIDE [POTASSIUM CHLORIDE;RIBOFLAVIN SODIUM PHOSPHATE] [Concomitant]
  16. TUMS [Concomitant]
     Active Substance: CALCIUM CARBONATE
  17. ADVAIR HFA [Concomitant]
     Active Substance: FLUTICASONE PROPIONATE\SALMETEROL XINAFOATE
  18. SIMETHICONE (DIMETHICONE) [Concomitant]
     Active Substance: DIMETHICONE
  19. PULMOZYME [Concomitant]
     Active Substance: DORNASE ALFA
  20. AMBIEN [Concomitant]
     Active Substance: ZOLPIDEM TARTRATE
  21. CREON [Concomitant]
     Active Substance: PANCRELIPASE AMYLASE\PANCRELIPASE LIPASE\PANCRELIPASE PROTEASE
  22. TRULANCE [Concomitant]
     Active Substance: PLECANATIDE
  23. ALFUZOSIN HCL [Concomitant]
     Active Substance: ALFUZOSIN HYDROCHLORIDE
  24. PLAQUENIL [Concomitant]
     Active Substance: HYDROXYCHLOROQUINE SULFATE
  25. NYSTATIN. [Concomitant]
     Active Substance: NYSTATIN
  26. LEXAPRO [Concomitant]
     Active Substance: ESCITALOPRAM OXALATE
  27. FLUTICASONE PROPIONATE. [Concomitant]
     Active Substance: FLUTICASONE PROPIONATE
  28. HYPERSAL [Concomitant]
     Active Substance: SODIUM CHLORIDE
  29. METHOCARBAMOL. [Concomitant]
     Active Substance: METHOCARBAMOL
  30. VITAMIN D [COLECALCIFEROL] [Concomitant]
     Active Substance: CHOLECALCIFEROL
  31. LINZESS [Concomitant]
     Active Substance: LINACLOTIDE
  32. OXYCONTIN [Concomitant]
     Active Substance: OXYCODONE HYDROCHLORIDE
  33. OMEPRAZOLE. [Concomitant]
     Active Substance: OMEPRAZOLE

REACTIONS (2)
  - Infective pulmonary exacerbation of cystic fibrosis [Unknown]
  - Carbon dioxide increased [Unknown]

NARRATIVE: CASE EVENT DATE: 202006
